FAERS Safety Report 9637142 (Version 2)
Quarter: 2014Q1

REPORT INFORMATION
  Report Type: Spontaneous
  Country: FR (occurrence: FR)
  Receive Date: 20131022
  Receipt Date: 20140110
  Transmission Date: 20141002
  Serious: Yes (Disabling)
  Sender: FDA-Public Use
  Company Number: FR-ASTRAZENECA-2013SE76618

PATIENT
  Age: 731 Month
  Sex: Female

DRUGS (1)
  1. INEXIUM [Suspect]
     Indication: ABDOMINAL PAIN UPPER
     Route: 048
     Dates: start: 201309, end: 20131011

REACTIONS (2)
  - Peripheral sensory neuropathy [Recovering/Resolving]
  - Paraesthesia [Recovering/Resolving]
